FAERS Safety Report 8440061-6 (Version None)
Quarter: 2012Q2

REPORT INFORMATION
  Report Type: 
  Country: None (occurrence: None)
  Receive Date: 20120615
  Receipt Date: 20120606
  Transmission Date: 20120825
  Serious: Yes (Hospitalization, Other)
  Sender: FDA-Public Use
  Company Number: US-ABBOTT-12P-163-0943417-00

PATIENT
  Age: 41 Year
  Sex: Male

DRUGS (6)
  1. MERCAPTOPURINE [Concomitant]
     Dosage: DOSE DECREASED
  2. MERCAPTOPURINE [Concomitant]
     Indication: PRODUCT USED FOR UNKNOWN INDICATION
     Dosage: DAILY
     Dates: start: 20101101
  3. PROBIOTIC [Concomitant]
     Indication: PRODUCT USED FOR UNKNOWN INDICATION
     Dosage: DAILY
  4. HUMIRA [Suspect]
     Indication: PYODERMA GANGRENOSUM
     Dates: start: 20101101, end: 20120211
  5. BENTYL [Concomitant]
     Indication: PRODUCT USED FOR UNKNOWN INDICATION
     Dosage: 10-20 MG DAILY
  6. HUMIRA [Suspect]
     Indication: CROHN'S DISEASE
     Dates: start: 20080101, end: 20101101

REACTIONS (7)
  - BACK INJURY [None]
  - DIARRHOEA [None]
  - SPINAL DISORDER [None]
  - STAPHYLOCOCCAL INFECTION [None]
  - PARASPINAL ABSCESS [None]
  - BACK DISORDER [None]
  - LOCALISED INFECTION [None]
